FAERS Safety Report 6408894-5 (Version None)
Quarter: 2009Q4

REPORT INFORMATION
  Report Type: 
  Country: None (occurrence: None)
  Receive Date: 20091021
  Receipt Date: 20091019
  Transmission Date: 20100525
  Serious: Yes (Disabling, Other)
  Sender: FDA-Public Use
  Company Number: US-MERCK-0908USA00768

PATIENT
  Age: 73 Year
  Sex: Female

DRUGS (2)
  1. FOSAMAX [Suspect]
     Indication: OSTEOPENIA
     Route: 048
     Dates: start: 19990601, end: 20010426
  2. FOSAMAX [Suspect]
     Route: 048
     Dates: start: 20010426, end: 20060620

REACTIONS (3)
  - BREAST CANCER [None]
  - OSTEONECROSIS [None]
  - TOOTH DISORDER [None]
